FAERS Safety Report 6187535-9 (Version None)
Quarter: 2009Q2

REPORT INFORMATION
  Report Type: 
  Country: None (occurrence: None)
  Receive Date: 20090512
  Receipt Date: 20090508
  Transmission Date: 20091009
  Serious: Yes (Other)
  Sender: FDA-Public Use
  Company Number: US-ASTRAZENECA-2009UW01997

PATIENT
  Age: 58 Year
  Sex: Male
  Weight: 114.3 kg

DRUGS (10)
  1. SEROQUEL [Suspect]
     Indication: POST-TRAUMATIC STRESS DISORDER
     Dosage: 25 MG TO 100 MG
     Route: 048
     Dates: start: 20041214, end: 20060303
  2. SEROQUEL [Suspect]
     Indication: INSOMNIA
     Dosage: 25 MG TO 100 MG
     Route: 048
     Dates: start: 20041214, end: 20060303
  3. SEROQUEL [Suspect]
     Indication: ANXIETY
     Dosage: 25 MG TO 100 MG
     Route: 048
     Dates: start: 20041214, end: 20060303
  4. ZYPREXA [Concomitant]
     Dosage: 2.5 MG, 100 MG
     Dates: start: 20030201, end: 20050301
  5. LIPITOR [Concomitant]
  6. ZOLOFT [Concomitant]
     Dates: start: 20010913, end: 20020501
  7. TRAZODONE HCL [Concomitant]
     Dates: start: 20021231
  8. ALPRAZOLAM [Concomitant]
     Dates: start: 20020514
  9. EFFEXOR [Concomitant]
     Dates: start: 20030101, end: 20040101
  10. CLONAZEPAM [Concomitant]
     Dates: start: 20030108, end: 20030129

REACTIONS (4)
  - ABDOMINAL DISCOMFORT [None]
  - JOINT INJURY [None]
  - MUSCULOSKELETAL DISORDER [None]
  - TYPE 2 DIABETES MELLITUS [None]
